FAERS Safety Report 8340972-6 (Version None)
Quarter: 2012Q1

REPORT INFORMATION
  Report Type: 
  Country: None (occurrence: None)
  Receive Date: 20120330
  Receipt Date: 20111212
  Transmission Date: 20120608
  Serious: Yes (Other)
  Sender: FDA-Public Use
  Company Number: PHEH2011US08260

PATIENT
  Age: 84 Year
  Sex: Female

DRUGS (5)
  1. DIOVAN [Concomitant]
  2. APRESIAN (APRESIAN) [Concomitant]
  3. EXELON [Suspect]
     Dosage: 4.6 MG\24HRS, TRANSDERMAL, 9.5 MG\24 HRS, TRANSDERMAL
     Route: 062
  4. METOPROLOL TARTRATE [Concomitant]
  5. CRESTOR [Concomitant]

REACTIONS (7)
  - LOOSE ASSOCIATIONS [None]
  - MALAISE [None]
  - DRUG INTOLERANCE [None]
  - LOSS OF CONSCIOUSNESS [None]
  - DRUG HYPERSENSITIVITY [None]
  - PAIN [None]
  - MEMORY IMPAIRMENT [None]
